FAERS Safety Report 25098399 (Version 1)
Quarter: 2025Q1

REPORT INFORMATION
  Report Type: Report from Study
  Country: CA (occurrence: CA)
  Receive Date: 20250320
  Receipt Date: 20250320
  Transmission Date: 20250409
  Serious: Yes (Other)
  Sender: TAKEDA
  Company Number: CA-SHIRE-CA201945028

PATIENT
  Sex: Male
  Weight: 90 kg

DRUGS (13)
  1. HUMAN IMMUNOGLOBULIN G [Suspect]
     Active Substance: HUMAN IMMUNOGLOBULIN G
     Indication: Secondary immunodeficiency
     Dosage: 8 GRAM, 1/WEEK
     Dates: start: 20191216
  2. HUMAN IMMUNOGLOBULIN G [Suspect]
     Active Substance: HUMAN IMMUNOGLOBULIN G
     Indication: Hypogammaglobulinaemia
     Dosage: 8 GRAM, 1/WEEK
  3. HUMAN IMMUNOGLOBULIN G [Suspect]
     Active Substance: HUMAN IMMUNOGLOBULIN G
     Indication: Chronic lymphocytic leukaemia
     Dosage: 8 GRAM, 1/WEEK
  4. HUMAN IMMUNOGLOBULIN G [Suspect]
     Active Substance: HUMAN IMMUNOGLOBULIN G
     Indication: Bacterial infection
     Dosage: 8 GRAM, 1/WEEK
  5. AMLODIPINE [Concomitant]
     Active Substance: AMLODIPINE BESYLATE
  6. IRBESARTAN [Concomitant]
     Active Substance: IRBESARTAN
  7. SIMVASTATIN [Concomitant]
     Active Substance: SIMVASTATIN
  8. AMIODARONE [Concomitant]
     Active Substance: AMIODARONE
  9. PRADAXA [Concomitant]
     Active Substance: DABIGATRAN ETEXILATE MESYLATE
  10. IBRUTINIB [Concomitant]
     Active Substance: IBRUTINIB
  11. LORAZEPAM [Concomitant]
     Active Substance: LORAZEPAM
  12. CANNABIS SATIVA SUBSP. INDICA TOP [Concomitant]
     Active Substance: CANNABIS SATIVA SUBSP. INDICA TOP
  13. GAMMAGARD [Concomitant]
     Active Substance: HUMAN IMMUNOGLOBULIN G

REACTIONS (13)
  - Glaucoma [Unknown]
  - Eye pruritus [Unknown]
  - Product administration error [Unknown]
  - Incorrect dose administered [Unknown]
  - Localised infection [Unknown]
  - Skin lesion [Unknown]
  - Spinal stenosis [Unknown]
  - Device infusion issue [Unknown]
  - Product physical issue [Unknown]
  - COVID-19 [Unknown]
  - Skin infection [Unknown]
  - Infusion site bruising [Unknown]
  - Headache [Unknown]

NARRATIVE: CASE EVENT DATE: 20240101
